FAERS Safety Report 6268595-3 (Version None)
Quarter: 2009Q3

REPORT INFORMATION
  Report Type: 
  Country: None (occurrence: None)
  Receive Date: 20090715
  Receipt Date: 20090709
  Transmission Date: 20100115
  Serious: Yes (Life-Threatening, Hospitalization)
  Sender: FDA-Public Use
  Company Number: FR-JNJFOC-20090405773

PATIENT
  Sex: Male

DRUGS (10)
  1. OFLOCET [Suspect]
     Indication: DRUG USE FOR UNKNOWN INDICATION
     Dosage: 200 MG/ 40 ML
     Route: 042
  2. VELCADE [Suspect]
     Indication: MULTIPLE MYELOMA
     Dosage: 2 INJECTIONS
     Route: 042
  3. ZELITREX [Suspect]
     Indication: DRUG USE FOR UNKNOWN INDICATION
     Route: 048
  4. LYRICA [Suspect]
     Indication: DRUG USE FOR UNKNOWN INDICATION
     Route: 048
  5. CALCIUM CARBONATE [Suspect]
     Indication: DRUG USE FOR UNKNOWN INDICATION
     Dosage: 2 TABLETS DAILY
     Route: 048
  6. TAZOCILLINE [Suspect]
     Indication: DRUG USE FOR UNKNOWN INDICATION
     Dosage: 4G/500MG
     Route: 042
  7. LASIX [Suspect]
     Indication: DRUG USE FOR UNKNOWN INDICATION
     Route: 048
  8. CALCIPARINE [Suspect]
     Indication: PROPHYLAXIS
     Dosage: 5000 IU/0.2 ML
     Route: 058
  9. INIPOMP [Suspect]
     Indication: GASTROINTESTINAL DISORDER THERAPY
     Route: 048
  10. FOLIC ACID [Suspect]
     Indication: DRUG USE FOR UNKNOWN INDICATION
     Route: 048

REACTIONS (3)
  - ENCEPHALOPATHY [None]
  - MYOCLONUS [None]
  - TUMOUR LYSIS SYNDROME [None]
